FAERS Safety Report 5765206-8 (Version None)
Quarter: 2008Q2

REPORT INFORMATION
  Report Type: 
  Country: None (occurrence: None)
  Receive Date: 20080610
  Receipt Date: 20080610
  Transmission Date: 20081010
  Serious: Yes (Hospitalization)
  Sender: FDA-Public Use
  Company Number: None

PATIENT
  Sex: Female
  Weight: 92 kg

DRUGS (2)
  1. ARALAST [Suspect]
     Indication: ALPHA-1 ANTI-TRYPSIN DEFICIENCY
     Dosage: 5520 MG ONCE - 10% QWEEK IV
     Route: 042
     Dates: start: 20080529
  2. ARALAST [Suspect]
     Indication: ALPHA-1 ANTI-TRYPSIN DEFICIENCY
     Dosage: 5520 MG ONCE - 10% QWEEK IV
     Route: 042
     Dates: start: 20080605

REACTIONS (6)
  - CATHETER RELATED COMPLICATION [None]
  - CHILLS [None]
  - HEADACHE [None]
  - INFUSION RELATED REACTION [None]
  - TREMOR [None]
  - URTICARIA [None]
